FAERS Safety Report 10433574 (Version 1)
Quarter: 2014Q3

REPORT INFORMATION
  Report Type: Spontaneous
  Country: BR (occurrence: BR)
  Receive Date: 20140905
  Receipt Date: 20140905
  Transmission Date: 20150326
  Serious: Yes (Disabling, Other)
  Sender: FDA-Public Use
  Company Number: BR-009507513-1409BRA001417

PATIENT
  Age: 40 Year
  Sex: Female
  Weight: 89 kg

DRUGS (2)
  1. TEMODAL [Suspect]
     Active Substance: TEMOZOLOMIDE
     Indication: BRAIN NEOPLASM
     Route: 048
  2. GARDENAL [Concomitant]
     Active Substance: PHENOBARBITAL

REACTIONS (8)
  - Brain operation [Unknown]
  - Brain neoplasm [Not Recovered/Not Resolved]
  - Aphonia [Not Recovered/Not Resolved]
  - Brain tumour operation [Not Recovered/Not Resolved]
  - Apallic syndrome [Not Recovered/Not Resolved]
  - Drug ineffective [Recovered/Resolved]
  - Movement disorder [Not Recovered/Not Resolved]
  - Asthenia [Not Recovered/Not Resolved]

NARRATIVE: CASE EVENT DATE: 201212
